FAERS Safety Report 18320326 (Version 1)
Quarter: 2020Q3

REPORT INFORMATION
  Report Type: Report from Study
  Country: None (occurrence: US)
  Receive Date: 20200929
  Receipt Date: 20200929
  Transmission Date: 20201103
  Serious: Yes (Other)
  Sender: FDA-Public Use
  Company Number: US-ABBVIE-20K-163-3580473-00

PATIENT
  Sex: Female

DRUGS (3)
  1. HUMIRA [Suspect]
     Active Substance: ADALIMUMAB
     Indication: UVEITIS
     Route: 058
     Dates: start: 2019, end: 202007
  2. LEVETIRACETAM. [Concomitant]
     Active Substance: LEVETIRACETAM
     Indication: PRODUCT USED FOR UNKNOWN INDICATION
  3. HUMIRA [Suspect]
     Active Substance: ADALIMUMAB
     Route: 058
     Dates: start: 2020

REACTIONS (17)
  - Fall [Recovering/Resolving]
  - Therapeutic response shortened [Unknown]
  - Loss of consciousness [Unknown]
  - Foot fracture [Recovering/Resolving]
  - Fatigue [Unknown]
  - Concussion [Unknown]
  - Abdominal pain upper [Unknown]
  - Anxiety [Recovering/Resolving]
  - Gastric disorder [Not Recovered/Not Resolved]
  - Injection site haemorrhage [Unknown]
  - Therapeutic product effect decreased [Unknown]
  - Visual impairment [Not Recovered/Not Resolved]
  - Seizure [Unknown]
  - Ankle fracture [Recovering/Resolving]
  - Diarrhoea [Not Recovered/Not Resolved]
  - Skin discolouration [Not Recovered/Not Resolved]
  - Hypophagia [Unknown]

NARRATIVE: CASE EVENT DATE: 2020
